FAERS Safety Report 22590196 (Version 1)
Quarter: 2023Q2

REPORT INFORMATION
  Report Type: Report from Study
  Country: KR (occurrence: KR)
  Receive Date: 20230612
  Receipt Date: 20230612
  Transmission Date: 20230721
  Serious: Yes (Other)
  Sender: FDA-Public Use
  Company Number: KR-TAKEDA-2022TUS065122

PATIENT
  Age: 61 Year
  Sex: Female
  Weight: 61 kg

DRUGS (8)
  1. VEDOLIZUMAB [Suspect]
     Active Substance: VEDOLIZUMAB
     Indication: Crohn^s disease
     Dosage: 300 MILLIGRAM
     Route: 065
     Dates: start: 20210924
  2. PENTASA [Concomitant]
     Active Substance: MESALAMINE
     Dosage: 2000 MILLIGRAM, BID
     Route: 048
     Dates: start: 20170110
  3. AZATHIOPRINE [Concomitant]
     Active Substance: AZATHIOPRINE
     Dosage: 50 MILLIGRAM, QD
     Route: 048
     Dates: start: 20210602, end: 20211105
  4. METHYLPREDNISOLONE [Concomitant]
     Active Substance: METHYLPREDNISOLONE
     Dosage: 12 MILLIGRAM, BID
     Route: 048
     Dates: start: 20210818, end: 20211007
  5. METHYLPREDNISOLONE [Concomitant]
     Active Substance: METHYLPREDNISOLONE
     Dosage: 10 MILLIGRAM, BID
     Route: 048
     Dates: start: 20211008, end: 20211014
  6. METHYLPREDNISOLONE [Concomitant]
     Active Substance: METHYLPREDNISOLONE
     Dosage: 8 MILLIGRAM, BID
     Route: 048
     Dates: start: 20211015, end: 20211021
  7. METHYLPREDNISOLONE [Concomitant]
     Active Substance: METHYLPREDNISOLONE
     Dosage: 12 MILLIGRAM, QD
     Route: 048
     Dates: start: 20211022, end: 20211028
  8. METHYLPREDNISOLONE [Concomitant]
     Active Substance: METHYLPREDNISOLONE
     Dosage: 8 MILLIGRAM, QD
     Route: 048
     Dates: start: 20211029, end: 20211104

REACTIONS (2)
  - Ileus [Recovered/Resolved]
  - COVID-19 [Recovered/Resolved]

NARRATIVE: CASE EVENT DATE: 20220217
